FAERS Safety Report 9989667 (Version 1)
Quarter: 2013Q4

REPORT INFORMATION
  Report Type: Spontaneous
  Country: US (occurrence: None)
  Receive Date: 20131106
  Receipt Date: 20131106
  Transmission Date: 20140711
  Serious: Yes (Other)
  Sender: FDA-Public Use
  Company Number: 2013SA099503

PATIENT
  Age: 61 Year
  Sex: Female

DRUGS (1)
  1. AUBAGIO [Suspect]
     Indication: MULTIPLE SCLEROSIS
     Route: 048
     Dates: start: 20130725

REACTIONS (4)
  - Flatulence [None]
  - Frequent bowel movements [None]
  - Diverticulitis [None]
  - Gastrointestinal disorder [None]
